FAERS Safety Report 7496925-3 (Version None)
Quarter: 2011Q2

REPORT INFORMATION
  Report Type: 
  Country: None (occurrence: None)
  Receive Date: 20110523
  Receipt Date: 20110511
  Transmission Date: 20111010
  Serious: Yes (Life-Threatening, Hospitalization, Disabling, Other)
  Sender: FDA-Public Use
  Company Number: US-MERCK-1104USA02893

PATIENT
  Age: 69 Year
  Sex: Male
  Weight: 110 kg

DRUGS (2)
  1. JANUVIA [Suspect]
     Indication: TYPE 2 DIABETES MELLITUS
     Route: 048
     Dates: start: 20080331
  2. BENAZEPRIL HYDROCHLORIDE [Suspect]
     Indication: HYPERTENSION
     Route: 065

REACTIONS (16)
  - PLEURAL EFFUSION [None]
  - COLONIC PSEUDO-OBSTRUCTION [None]
  - COLITIS ISCHAEMIC [None]
  - RENAL DISORDER [None]
  - KLEBSIELLA SEPSIS [None]
  - BACTERAEMIA [None]
  - DEPRESSION [None]
  - RESPIRATORY FAILURE [None]
  - WHITE BLOOD CELL COUNT INCREASED [None]
  - LEUKOCYTOSIS [None]
  - PANCREATIC ABSCESS [None]
  - DIABETIC KETOACIDOSIS [None]
  - PANCREATITIS [None]
  - CHOLELITHIASIS [None]
  - PSEUDOMONAS INFECTION [None]
  - BLOOD DISORDER [None]
